FAERS Safety Report 10928197 (Version 2)
Quarter: 2015Q2

REPORT INFORMATION
  Report Type: Spontaneous
  Country: US (occurrence: US)
  Receive Date: 20150319
  Receipt Date: 20150427
  Transmission Date: 20150821
  Serious: No
  Sender: FDA-Public Use
  Company Number: US-BIOGENIDEC-2015BI033004

PATIENT
  Sex: Female

DRUGS (2)
  1. TECFIDERA [Suspect]
     Active Substance: DIMETHYL FUMARATE
     Indication: MULTIPLE SCLEROSIS
     Dates: start: 20140417
  2. TECFIDERA [Suspect]
     Active Substance: DIMETHYL FUMARATE
     Indication: MULTIPLE SCLEROSIS
     Dates: end: 201303

REACTIONS (5)
  - Anxiety [Not Recovered/Not Resolved]
  - Hepatic enzyme increased [Unknown]
  - Paranoia [Not Recovered/Not Resolved]
  - Weight abnormal [Unknown]
  - Depression [Not Recovered/Not Resolved]
